FAERS Safety Report 25869465 (Version 1)
Quarter: 2025Q4

REPORT INFORMATION
  Report Type: Spontaneous
  Country: US (occurrence: US)
  Receive Date: 20251001
  Receipt Date: 20251001
  Transmission Date: 20260118
  Serious: No
  Sender: RECKITT BENCKISER
  Company Number: US-INDIVIOR US-INDV-156860-2024

PATIENT
  Age: 50 Year
  Sex: Female

DRUGS (28)
  1. SUBOXONE [Suspect]
     Active Substance: BUPRENORPHINE HYDROCHLORIDE\NALOXONE HYDROCHLORIDE
     Indication: Product used for unknown indication
     Dosage: 8 MILLIGRAM, UNKNOWN
     Route: 065
     Dates: start: 20180108
  2. SUBOXONE [Suspect]
     Active Substance: BUPRENORPHINE HYDROCHLORIDE\NALOXONE HYDROCHLORIDE
     Indication: Product used for unknown indication
     Dosage: 4 MILLIGRAM, UNKNOWN
     Route: 065
     Dates: start: 20190427
  3. BUPRENORPHINE\NALOXONE [Suspect]
     Active Substance: BUPRENORPHINE\NALOXONE
     Indication: Product used for unknown indication
     Dosage: 8 MILLIGRAM, UNKNOWN
     Route: 065
     Dates: start: 20190225
  4. BUPRENORPHINE\NALOXONE [Suspect]
     Active Substance: BUPRENORPHINE\NALOXONE
     Indication: Product used for unknown indication
     Dosage: 4 MILLIGRAM, UNKNOWN
     Route: 065
     Dates: start: 20190310
  5. BUPROPION [Concomitant]
     Active Substance: BUPROPION
     Indication: Product used for unknown indication
     Dosage: 150 MILLIGRAM, UNKNOWN
     Route: 065
     Dates: start: 20211126
  6. OMEPRAZOLE [Concomitant]
     Active Substance: OMEPRAZOLE
     Indication: Product used for unknown indication
     Dosage: 20 MILLIGRAM, UNKNOWN
     Route: 065
     Dates: start: 20180221
  7. TOLTERODINE TARTRATE [Concomitant]
     Active Substance: TOLTERODINE TARTRATE
     Indication: Product used for unknown indication
     Dosage: 2 MILLIGRAM, UNKNOWN
     Route: 065
     Dates: start: 20180221
  8. TIZANIDINE [Concomitant]
     Active Substance: TIZANIDINE
     Indication: Product used for unknown indication
     Dosage: 4 MILLIGRAM, UNKNOWN
     Route: 065
     Dates: start: 20180302
  9. LIDOCAINE [Concomitant]
     Active Substance: LIDOCAINE
     Indication: Product used for unknown indication
     Dosage: UNK
     Route: 065
     Dates: start: 20180312
  10. DULOXETINE [Concomitant]
     Active Substance: DULOXETINE
     Indication: Product used for unknown indication
     Dosage: 30 MILLIGRAM, UNKNOWN
     Route: 065
     Dates: start: 20180320
  11. FLUTICASONE [Concomitant]
     Active Substance: FLUTICASONE
     Indication: Product used for unknown indication
     Dosage: 50 MICROGRAM, UNKNOWN
     Route: 065
     Dates: start: 20180320
  12. IBUPROFEN [Concomitant]
     Active Substance: IBUPROFEN
     Indication: Product used for unknown indication
     Dosage: 800 MILLIGRAM, UNKNOWN
     Route: 065
     Dates: start: 20180421
  13. PROAIR HFA [Concomitant]
     Active Substance: ALBUTEROL SULFATE
     Indication: Product used for unknown indication
     Dosage: 90 MICROGRAM, UNKNOWN
     Dates: start: 20180502
  14. AZITHROMYCIN [Concomitant]
     Active Substance: AZITHROMYCIN
     Indication: Product used for unknown indication
     Dosage: 250 MILLIGRAM, UNKNOWN
     Route: 065
     Dates: start: 20180502
  15. METHYLPREDNISOLONE [Concomitant]
     Active Substance: METHYLPREDNISOLONE
     Indication: Product used for unknown indication
     Dosage: 4 MILLIGRAM, UNKNOWN
     Route: 065
     Dates: start: 20180502
  16. MONTELUKAST [Concomitant]
     Active Substance: MONTELUKAST
     Indication: Product used for unknown indication
     Dosage: 10 MILLIGRAM, UNKNOWN
     Route: 065
     Dates: start: 20180906
  17. METOCLOPRAMIDE [Concomitant]
     Active Substance: METOCLOPRAMIDE
     Indication: Product used for unknown indication
     Dosage: 10 MILLIGRAM, UNKNOWN
     Route: 065
     Dates: start: 20180923
  18. ONDANSETRON [Concomitant]
     Active Substance: ONDANSETRON
     Indication: Product used for unknown indication
     Dosage: 4 MILLIGRAM, UNKNOWN
     Route: 065
     Dates: start: 20180923
  19. POLYETHYLENE GLYCOL 3350 [Concomitant]
     Active Substance: POLYETHYLENE GLYCOL 3350
     Indication: Product used for unknown indication
     Dosage: UNK
     Route: 065
     Dates: start: 20180923
  20. RANITIDINE [Concomitant]
     Active Substance: RANITIDINE
     Indication: Product used for unknown indication
     Dosage: 300 MILLIGRAM, UNKNOWN
     Route: 065
     Dates: start: 20181127
  21. SSD [Concomitant]
     Active Substance: SILVER SULFADIAZINE
     Indication: Product used for unknown indication
     Dosage: UNK
     Route: 065
     Dates: start: 20181121
  22. AMOXICILLIN\CLAVULANIC ACID [Concomitant]
     Active Substance: AMOXICILLIN\CLAVULANIC ACID
     Indication: Product used for unknown indication
     Dosage: 875 MILLIGRAM, UNKNOWN
     Route: 065
     Dates: start: 20190508
  23. CLINDAMYCIN [Concomitant]
     Active Substance: CLINDAMYCIN
     Indication: Product used for unknown indication
     Dosage: 150 MILLIGRAM, UNKNOWN
     Route: 065
     Dates: start: 20190813
  24. PENICILLIN V POTASSIUM [Concomitant]
     Active Substance: PENICILLIN V POTASSIUM
     Indication: Product used for unknown indication
     Dosage: 500 MILLIGRAM, UNKNOWN
     Route: 065
     Dates: start: 20191009
  25. DIAZEPAM [Concomitant]
     Active Substance: DIAZEPAM
     Indication: Product used for unknown indication
     Dosage: 5 MILLIGRAM, UNKNOWN
     Route: 065
     Dates: start: 20191009
  26. METRONIDAZOLE [Concomitant]
     Active Substance: METRONIDAZOLE
     Indication: Product used for unknown indication
     Dosage: 250 MILLIGRAM, UNKNOWN
     Route: 065
     Dates: start: 20221013
  27. NICOTINE [Concomitant]
     Active Substance: NICOTINE
     Indication: Product used for unknown indication
     Dosage: 21 MILLIGRAM, Q24H
     Route: 065
     Dates: start: 20221215
  28. CYMBALTA [Concomitant]
     Active Substance: DULOXETINE HYDROCHLORIDE
     Indication: Product used for unknown indication
     Dosage: UNK
     Route: 065

REACTIONS (8)
  - Periodontal inflammation [Unknown]
  - Fibroma [Unknown]
  - Dental caries [Unknown]
  - Tooth erosion [Unknown]
  - Tooth loss [Unknown]
  - Road traffic accident [Recovered/Resolved]
  - Injury [Unknown]
  - Toothache [Unknown]

NARRATIVE: CASE EVENT DATE: 20190713
